FAERS Safety Report 4907592-4 (Version None)
Quarter: 2006Q1

REPORT INFORMATION
  Report Type: 
  Country: None (occurrence: None)
  Receive Date: 20060208
  Receipt Date: 20060208
  Transmission Date: 20060701
  Serious: Yes (Death, Hospitalization)
  Sender: FDA-Public Use
  Company Number: None

PATIENT
  Sex: Female
  Weight: 13.9 kg

DRUGS (4)
  1. CYCLOPHOSPHAMIDE [Suspect]
     Indication: NEUROBLASTOMA
     Dosage: 360 MG
     Dates: start: 20050720, end: 20050721
  2. DOXORUBICIN HCL [Suspect]
     Dosage: 9 MG
     Dates: start: 20050720, end: 20050721
  3. MESNA [Suspect]
     Dosage: 1008 MG
     Dates: start: 20050720, end: 20050721
  4. VINCRISTINE SULFATE [Suspect]
     Dosage: .19 MG
     Dates: start: 20050720, end: 20050721

REACTIONS (15)
  - AORTIC VALVE INCOMPETENCE [None]
  - CARDIAC FAILURE CONGESTIVE [None]
  - DILATATION VENTRICULAR [None]
  - DISEASE PROGRESSION [None]
  - GALLOP RHYTHM PRESENT [None]
  - HEART RATE INCREASED [None]
  - HYPERTENSION [None]
  - MITRAL VALVE INCOMPETENCE [None]
  - NOCARDIOSIS [None]
  - PERICARDIAL EFFUSION [None]
  - PLEURAL EFFUSION [None]
  - PULMONARY OEDEMA [None]
  - PULMONARY VALVE INCOMPETENCE [None]
  - RESPIRATORY DISTRESS [None]
  - RESPIRATORY RATE INCREASED [None]
